FAERS Safety Report 14185137 (Version 1)
Quarter: 2017Q4

REPORT INFORMATION
  Report Type: Spontaneous
  Country: US (occurrence: US)
  Receive Date: 20171111
  Receipt Date: 20171111
  Transmission Date: 20180321
  Serious: Yes (Disabling, Other)
  Sender: FDA-Public Use
  Company Number: None

PATIENT
  Sex: Male
  Weight: 46.8 kg

DRUGS (6)
  1. CONCERTA [Concomitant]
     Active Substance: METHYLPHENIDATE HYDROCHLORIDE
  2. CLONIDINE. [Concomitant]
     Active Substance: CLONIDINE
  3. INHALERS [Concomitant]
     Active Substance: UNSPECIFIED INGREDIENT
  4. OMEGA 3 [Concomitant]
     Active Substance: OMEGA-3 FATTY ACIDS
  5. RATINADINE [Concomitant]
  6. MINOCYCLINE [Suspect]
     Active Substance: MINOCYCLINE\MINOCYCLINE HYDROCHLORIDE
     Indication: ATTENTION DEFICIT/HYPERACTIVITY DISORDER
     Dates: start: 20161015, end: 20161110

REACTIONS (12)
  - Weight increased [None]
  - Ultrasound kidney abnormal [None]
  - White matter lesion [None]
  - Supraventricular tachycardia [None]
  - Viral infection [None]
  - Liver disorder [None]
  - Pain [None]
  - Multi-organ disorder [None]
  - Blood test abnormal [None]
  - Hypertension [None]
  - Affective disorder [None]
  - Autoimmune disorder [None]

NARRATIVE: CASE EVENT DATE: 20161101
